FAERS Safety Report 16164143 (Version 2)
Quarter: 2019Q2

REPORT INFORMATION
  Report Type: Spontaneous
  Country: US (occurrence: US)
  Receive Date: 20190405
  Receipt Date: 20190412
  Transmission Date: 20190711
  Serious: No
  Sender: FDA-Public Use
  Company Number: US-SA-2019SA091959

PATIENT
  Age: 61 Year
  Sex: Male

DRUGS (4)
  1. LANTUS SOLOSTAR [Suspect]
     Active Substance: INSULIN GLARGINE
     Indication: TYPE 2 DIABETES MELLITUS
     Dosage: 12 U, HS
     Route: 065
  2. METFORMIN HYDROCHLORIDE. [Suspect]
     Active Substance: METFORMIN HYDROCHLORIDE
     Dosage: UNK UNK, HS
     Route: 065
  3. STATIN EZ [Suspect]
     Active Substance: ATORVASTATIN CALCIUM\EZETIMIBE
     Route: 065
  4. BASAGLAR [Concomitant]
     Active Substance: INSULIN GLARGINE
     Route: 065

REACTIONS (8)
  - Feeling abnormal [Unknown]
  - Confusional state [Unknown]
  - Drug ineffective [Unknown]
  - Injection site discolouration [Unknown]
  - Vision blurred [Unknown]
  - Urticaria [Unknown]
  - Blood glucose increased [Unknown]
  - Pruritus generalised [Unknown]

NARRATIVE: CASE EVENT DATE: 20190320
